FAERS Safety Report 11977356 (Version 1)
Quarter: 2016Q1

REPORT INFORMATION
  Report Type: Report from Study
  Country: AR (occurrence: AR)
  Receive Date: 20160129
  Receipt Date: 20160129
  Transmission Date: 20160526
  Serious: Yes (Hospitalization)
  Sender: FDA-Public Use
  Company Number: AR-SA-2014SA109440

PATIENT
  Age: 68 Year
  Sex: Female
  Weight: 61 kg

DRUGS (13)
  1. BISOPROLOL [Concomitant]
     Active Substance: BISOPROLOL
     Dates: start: 20140324
  2. CLOPIDOGREL [Concomitant]
     Active Substance: CLOPIDOGREL BISULFATE
     Dates: start: 20140324
  3. TRAVOPROST [Concomitant]
     Active Substance: TRAVOPROST
     Dates: start: 2002
  4. ISOSORBIDE MONONITRATE. [Concomitant]
     Active Substance: ISOSORBIDE MONONITRATE
     Dates: start: 20140327
  5. ASA [Concomitant]
     Active Substance: ASPIRIN
     Dates: start: 20140324
  6. SAR236553 [Suspect]
     Active Substance: ALIROCUMAB
     Indication: HYPERCHOLESTEROLAEMIA
     Route: 058
     Dates: start: 20140710, end: 20140724
  7. SAR236553 [Suspect]
     Active Substance: ALIROCUMAB
     Indication: HYPERCHOLESTEROLAEMIA
     Route: 058
     Dates: start: 20140807, end: 20140807
  8. EPLERENONE. [Concomitant]
     Active Substance: EPLERENONE
     Dates: start: 20140328
  9. METFORMIN [Concomitant]
     Active Substance: METFORMIN HYDROCHLORIDE
     Dates: start: 201403, end: 20140808
  10. ROSUVASTATIN [Suspect]
     Active Substance: ROSUVASTATIN
     Indication: HYPERCHOLESTEROLAEMIA
     Route: 048
     Dates: start: 20140905
  11. GLIBENCLAMIDE [Concomitant]
     Active Substance: GLYBURIDE
     Dates: start: 201403
  12. ROSUVASTATIN [Suspect]
     Active Substance: ROSUVASTATIN
     Indication: HYPERCHOLESTEROLAEMIA
     Route: 048
     Dates: start: 20140324, end: 20140808
  13. VALSARTAN. [Concomitant]
     Active Substance: VALSARTAN
     Dates: start: 20140328

REACTIONS (1)
  - Alanine aminotransferase increased [Recovered/Resolved]

NARRATIVE: CASE EVENT DATE: 20140805
